FAERS Safety Report 5012090-6 (Version None)
Quarter: 2006Q2

REPORT INFORMATION
  Report Type: 
  Country: None (occurrence: None)
  Receive Date: 20060524
  Receipt Date: 20060515
  Transmission Date: 20061013
  Serious: Yes (Other)
  Sender: FDA-Public Use
  Company Number: GXKR2006FR01749

PATIENT
  Age: 27 Year
  Sex: Female

DRUGS (2)
  1. KETOPROFEN SANDOZ (NGX) (KETOPROFEN) CAPSULE,  200MG [Suspect]
     Indication: ANKYLOSING SPONDYLITIS
     Dosage: ORAL
     Route: 048
     Dates: start: 20060510
  2. SULFASALAZINE [Suspect]
     Dosage: ORAL
     Route: 048
     Dates: start: 20060510

REACTIONS (2)
  - GLOSSITIS [None]
  - RASH GENERALISED [None]
